FAERS Safety Report 4604157-9 (Version None)
Quarter: 2005Q1

REPORT INFORMATION
  Report Type: 
  Country: None (occurrence: None)
  Receive Date: 20050214
  Receipt Date: 20041104
  Transmission Date: 20050727
  Serious: No
  Sender: FDA-Public Use
  Company Number: US_0411107936

PATIENT
  Age: 72 Year
  Sex: Male
  Weight: 91 kg

DRUGS (6)
  1. CIALIS [Suspect]
     Indication: ERECTILE DYSFUNCTION
     Dosage: 20 MG
     Dates: start: 20040601
  2. PROBENECID [Concomitant]
  3. HYTRIN [Concomitant]
  4. LESCOL [Concomitant]
  5. VASOTEC [Concomitant]
  6. HYDROCHLOROTHIAZIDE [Concomitant]

REACTIONS (1)
  - BLOOD PRESSURE DECREASED [None]
